FAERS Safety Report 12962521 (Version 1)
Quarter: 2016Q4

REPORT INFORMATION
  Report Type: Report from Study
  Country: BR (occurrence: BR)
  Receive Date: 20161121
  Receipt Date: 20161121
  Transmission Date: 20170207
  Serious: Yes (Other)
  Sender: FDA-Public Use
  Company Number: PHHY2016BR153548

PATIENT
  Sex: Male
  Weight: 50 kg

DRUGS (2)
  1. OMNITROPE [Suspect]
     Active Substance: SOMATROPIN
     Indication: GROWTH RETARDATION
     Dosage: 2 MG, QD
     Route: 058
     Dates: start: 20160908
  2. LECTRUM [Suspect]
     Active Substance: LEUPROLIDE ACETATE
     Indication: DELAYED PUBERTY
     Dosage: 1 AMPOULE EVERY 28 DAYS
     Route: 065

REACTIONS (1)
  - Angioedema [Recovering/Resolving]
